FAERS Safety Report 5754341-6 (Version None)
Quarter: 2008Q2

REPORT INFORMATION
  Report Type: 
  Country: None (occurrence: None)
  Receive Date: 20080530
  Receipt Date: 20080520
  Transmission Date: 20081010
  Serious: Yes (Death)
  Sender: FDA-Public Use
  Company Number: MX-PFIZER INC-2008041996

PATIENT
  Sex: Male

DRUGS (6)
  1. CHANTIX [Suspect]
     Indication: SMOKING CESSATION THERAPY
     Route: 048
     Dates: start: 20080412, end: 20080504
  2. CHANTIX [Suspect]
     Route: 048
     Dates: start: 20080415, end: 20080418
  3. CHANTIX [Suspect]
     Route: 048
     Dates: start: 20080419, end: 20080504
  4. VITAMINS [Concomitant]
     Route: 048
  5. RANITIDINE [Concomitant]
     Indication: GASTRITIS
     Route: 048
  6. ANTI-DIABETICS [Concomitant]
     Indication: DIABETES MELLITUS
     Route: 048
     Dates: start: 20070101, end: 20080504

REACTIONS (4)
  - ABDOMINAL PAIN UPPER [None]
  - DIZZINESS [None]
  - GASTRIC HAEMORRHAGE [None]
  - MYOCARDIAL INFARCTION [None]
